FAERS Safety Report 13773257 (Version 1)
Quarter: 2017Q3

REPORT INFORMATION
  Report Type: Spontaneous
  Country: US (occurrence: US)
  Receive Date: 20170720
  Receipt Date: 20170720
  Transmission Date: 20171127
  Serious: No
  Sender: FDA-Public Use
  Company Number: US-GALDERMA-US16005223

PATIENT
  Age: 77 Year
  Sex: Male

DRUGS (6)
  1. UNSPECIFIED DIABETES PILL [Concomitant]
     Indication: DIABETES MELLITUS
     Route: 048
  2. UNSPECIFIED MULTIVITAMIN [Concomitant]
     Indication: PRODUCT USED FOR UNKNOWN INDICATION
     Route: 048
  3. DOXYCYCLINE (DOXYCYCLINE) CAPSULES, 40 MG [Suspect]
     Active Substance: DOXYCYCLINE
     Dosage: 40 MG
     Route: 048
  4. NEUTROGENA SCRUB FOR ACNE [Concomitant]
     Indication: THERAPEUTIC SKIN CARE TOPICAL
     Route: 061
  5. DOXYCYCLINE (DOXYCYCLINE) CAPSULES, 40 MG [Suspect]
     Active Substance: DOXYCYCLINE
     Indication: ROSACEA
     Dosage: 40 MG
     Route: 048
     Dates: start: 20160407
  6. UNSPECIFIED BLOOD PRESSURE PILL [Concomitant]
     Indication: HYPERTENSION
     Route: 048

REACTIONS (1)
  - Rosacea [Not Recovered/Not Resolved]
